FAERS Safety Report 5596347-6 (Version None)
Quarter: 2008Q1

REPORT INFORMATION
  Report Type: 
  Country: None (occurrence: None)
  Receive Date: 20080118
  Receipt Date: 20080111
  Transmission Date: 20080703
  Serious: Yes (Other)
  Sender: FDA-Public Use
  Company Number: US-MERCK-0801USA02798

PATIENT
  Sex: Female

DRUGS (1)
  1. ZETIA [Suspect]
     Route: 048

REACTIONS (3)
  - HEMIPARESIS [None]
  - HYPOAESTHESIA [None]
  - PAIN IN EXTREMITY [None]
